FAERS Safety Report 5343585-3 (Version None)
Quarter: 2007Q2

REPORT INFORMATION
  Report Type: 
  Country: None (occurrence: None)
  Receive Date: 20070531
  Receipt Date: 20070516
  Transmission Date: 20071010
  Serious: Yes (Other)
  Sender: FDA-Public Use
  Company Number: 2007RR-07667

PATIENT
  Age: 70 Year
  Sex: Male

DRUGS (2)
  1. SIMVASTATIN [Suspect]
  2. COLCHICUM JTL LIQ [Suspect]
     Indication: GOUT
     Dosage: 0.5 MG, BID

REACTIONS (7)
  - DRUG INTERACTION [None]
  - GAIT DISTURBANCE [None]
  - MUSCLE CONTRACTIONS INVOLUNTARY [None]
  - MYOPATHY [None]
  - MYOTONIA [None]
  - NERVE CONDUCTION STUDIES ABNORMAL [None]
  - SENSORIMOTOR DISORDER [None]
